FAERS Safety Report 5466143-9 (Version None)
Quarter: 2007Q3

REPORT INFORMATION
  Report Type: 
  Country: None (occurrence: None)
  Receive Date: 20070919
  Receipt Date: 20070907
  Transmission Date: 20080115
  Serious: Yes (Hospitalization)
  Sender: FDA-Public Use
  Company Number: GXKR2007GR07828

PATIENT
  Age: 17 Year
  Sex: Female
  Weight: 60 kg

DRUGS (1)
  1. ACETYLSALICYLIC ACID (NGX) ACETYLSALICYLIC ACID) TABLET [Suspect]
     Dosage: 12.5 G, ONCE/SINGLE, ORAL
     Route: 048

REACTIONS (7)
  - ACID-BASE BALANCE DISORDER MIXED [None]
  - FANCONI SYNDROME ACQUIRED [None]
  - HYPERVENTILATION [None]
  - INTENTIONAL OVERDOSE [None]
  - METABOLIC ACIDOSIS [None]
  - RESPIRATORY ALKALOSIS [None]
  - SUICIDE ATTEMPT [None]
